FAERS Safety Report 7202531-8 (Version None)
Quarter: 2010Q4

REPORT INFORMATION
  Report Type: 
  Country: None (occurrence: None)
  Receive Date: 20101229
  Receipt Date: 20101223
  Transmission Date: 20110411
  Serious: Yes (Hospitalization)
  Sender: FDA-Public Use
  Company Number: IT-MERCK-1007ITA00009

PATIENT
  Age: 76 Year
  Sex: Male

DRUGS (2)
  1. SINEMET [Suspect]
     Indication: PARKINSON'S DISEASE
     Route: 048
  2. DOXAZOSIN MESYLATE [Suspect]
     Indication: HYPERTENSION
     Route: 048

REACTIONS (4)
  - DYSPNOEA [None]
  - HYPERKALAEMIA [None]
  - LUNG INFILTRATION [None]
  - RESPIRATORY DISORDER [None]
